FAERS Safety Report 14056115 (Version 1)
Quarter: 2017Q4

REPORT INFORMATION
  Report Type: Spontaneous
  Country: FR (occurrence: FR)
  Receive Date: 20171006
  Receipt Date: 20171006
  Transmission Date: 20180321
  Serious: Yes (Life-Threatening, Hospitalization)
  Sender: FDA-Public Use
  Company Number: FR-JNJFOC-20171001655

PATIENT
  Sex: Male

DRUGS (3)
  1. IMOVANE [Suspect]
     Active Substance: ZOPICLONE
     Indication: PRODUCT USED FOR UNKNOWN INDICATION
     Route: 048
  2. RISPERDAL [Suspect]
     Active Substance: RISPERIDONE
     Indication: PRODUCT USED FOR UNKNOWN INDICATION
     Route: 048
  3. METHADONE [Suspect]
     Active Substance: METHADONE HYDROCHLORIDE
     Indication: PRODUCT USED FOR UNKNOWN INDICATION
     Route: 048

REACTIONS (7)
  - Intentional overdose [Recovered/Resolved]
  - Drug dependence [Not Recovered/Not Resolved]
  - Coma [Recovered/Resolved]
  - Miosis [Recovered/Resolved]
  - Respiratory arrest [Recovered/Resolved]
  - Bradypnoea [Recovered/Resolved]
  - Toxicity to various agents [Recovered/Resolved]
